FAERS Safety Report 20003758 (Version 1)
Quarter: 2021Q4

REPORT INFORMATION
  Report Type: Spontaneous
  Country: CA (occurrence: CA)
  Receive Date: 20211028
  Receipt Date: 20211028
  Transmission Date: 20220303
  Serious: Yes (Other)
  Sender: FDA-Public Use
  Company Number: CA-AUROBINDO-AUR-APL-2021-044277

PATIENT
  Age: 39 Year
  Sex: Male
  Weight: 108 kg

DRUGS (2)
  1. AMOXICILLIN [Suspect]
     Active Substance: AMOXICILLIN
     Indication: Product used for unknown indication
     Dosage: UNK
     Route: 065
  2. SIMPONI [Suspect]
     Active Substance: GOLIMUMAB
     Indication: Ankylosing spondylitis
     Dosage: 50 MILLIGRAM (1 EVERY 4 WEEKS)
     Route: 058

REACTIONS (3)
  - Diarrhoea [Unknown]
  - Lower respiratory tract infection [Unknown]
  - Nausea [Unknown]
